FAERS Safety Report 5039060-6 (Version None)
Quarter: 2006Q2

REPORT INFORMATION
  Report Type: 
  Country: None (occurrence: None)
  Receive Date: 20060629
  Receipt Date: 20040614
  Transmission Date: 20061013
  Serious: Yes (Hospitalization)
  Sender: FDA-Public Use
  Company Number: FR-AMGEN-US184204

PATIENT
  Age: 53 Year
  Sex: Female

DRUGS (6)
  1. ENBREL [Suspect]
     Indication: RHEUMATOID ARTHRITIS
     Route: 058
     Dates: end: 20040101
  2. CORTANCYL [Suspect]
     Route: 048
     Dates: end: 20040128
  3. METHOTREXATE [Suspect]
     Route: 048
     Dates: end: 20040128
  4. SPECIAFOLDINE [Concomitant]
     Dates: end: 20040128
  5. BISOPROLOL FUMARATE [Concomitant]
     Dates: end: 20040128
  6. VITAMIN D3 [Concomitant]
     Dates: end: 20040128

REACTIONS (5)
  - ACUTE RESPIRATORY DISTRESS SYNDROME [None]
  - EMPHYSEMA [None]
  - PLEURAL EFFUSION [None]
  - PNEUMONIA PNEUMOCOCCAL [None]
  - SHOCK [None]
